FAERS Safety Report 22333741 (Version 1)
Quarter: 2023Q2

REPORT INFORMATION
  Report Type: Spontaneous
  Country: US (occurrence: None)
  Receive Date: 20230516
  Receipt Date: 20230516
  Transmission Date: 20230721
  Serious: Yes (Death)
  Sender: FDA-Public Use
  Company Number: None

PATIENT
  Age: 92 Year
  Sex: Female
  Weight: 59.87 kg

DRUGS (15)
  1. PROMACTA [Suspect]
     Active Substance: ELTROMBOPAG OLAMINE
     Indication: Thrombocytopenia
     Dosage: FREQUENCY : DAILY;?
     Route: 048
     Dates: start: 202304
  2. ATORVASTATIN [Concomitant]
     Active Substance: ATORVASTATIN
  3. CALCIUM [Concomitant]
     Active Substance: CALCIUM
  4. DILTIAZEM [Concomitant]
     Active Substance: DILTIAZEM
  5. ELIQUIS [Concomitant]
     Active Substance: APIXABAN
  6. FERROUS SULFATE [Concomitant]
     Active Substance: FERROUS SULFATE
  7. FUROSEMIDE [Concomitant]
     Active Substance: FUROSEMIDE
  8. FUROSEMIDE [Concomitant]
     Active Substance: FUROSEMIDE
  9. LANTUS [Concomitant]
     Active Substance: INSULIN GLARGINE
  10. LOSARTAN [Concomitant]
     Active Substance: LOSARTAN
  11. METOLAZONE [Concomitant]
     Active Substance: METOLAZONE
  12. VITAMINS [Concomitant]
     Active Substance: VITAMINS
  13. POTASSIUM [Concomitant]
     Active Substance: POTASSIUM
  14. PREDNISONE [Concomitant]
     Active Substance: PREDNISONE
  15. PROTONIX [Concomitant]

REACTIONS (1)
  - Death [None]

NARRATIVE: CASE EVENT DATE: 20230516
